FAERS Safety Report 24466885 (Version 1)
Quarter: 2024Q4

REPORT INFORMATION
  Report Type: Report from Study
  Country: US (occurrence: US)
  Receive Date: 20241018
  Receipt Date: 20241018
  Transmission Date: 20250115
  Serious: No
  Sender: ROCHE
  Company Number: US-ROCHE-3548605

PATIENT
  Age: 14 Year
  Sex: Male
  Weight: 76.66 kg

DRUGS (1)
  1. XOLAIR [Suspect]
     Active Substance: OMALIZUMAB
     Indication: Asthma
     Dosage: DATE OF SERVICE 04/APR/2023, 24/MAY/2023,
     Route: 058
     Dates: start: 20230313, end: 20240108

REACTIONS (3)
  - Hyphaema [Not Recovered/Not Resolved]
  - Dry eye [Not Recovered/Not Resolved]
  - Pulse abnormal [Unknown]

NARRATIVE: CASE EVENT DATE: 20230915
